FAERS Safety Report 18913281 (Version 2)
Quarter: 2021Q2

REPORT INFORMATION
  Report Type: Spontaneous
  Country: SE (occurrence: SE)
  Receive Date: 20210218
  Receipt Date: 20210518
  Transmission Date: 20210717
  Serious: Yes (Other)
  Sender: FDA-Public Use
  Company Number: SE-REGENERON PHARMACEUTICALS, INC.-2021-21733

PATIENT

DRUGS (2)
  1. EYLEA [Suspect]
     Active Substance: AFLIBERCEPT
     Indication: PRODUCT USED FOR UNKNOWN INDICATION
     Dosage: INJECTION RECEIVED AT FIRST EPISODE OF IOP HIGH
     Dates: start: 20201208, end: 20201208
  2. EYLEA [Suspect]
     Active Substance: AFLIBERCEPT
     Dosage: INJECTION RECEIVED AT SECOND EPISODE OF IOP HIGH, UNKNOWN TOTAL NUMBER OF INJECTIONS
     Dates: start: 20210105, end: 20210105

REACTIONS (4)
  - Blindness transient [Recovered/Resolved]
  - Device use issue [Unknown]
  - Intraocular pressure increased [Unknown]
  - Intraocular pressure increased [Recovered/Resolved]

NARRATIVE: CASE EVENT DATE: 20201208
